FAERS Safety Report 25387802 (Version 1)
Quarter: 2025Q2

REPORT INFORMATION
  Report Type: Spontaneous
  Country: DE (occurrence: DE)
  Receive Date: 20250603
  Receipt Date: 20250603
  Transmission Date: 20250716
  Serious: Yes (Disabling, Other)
  Sender: JOHNSON AND JOHNSON
  Company Number: DE-JNJFOC-20250386019

PATIENT
  Age: 84 Year
  Weight: 80 kg

DRUGS (2)
  1. ERLEADA [Suspect]
     Active Substance: APALUTAMIDE
     Indication: Hormone-dependent prostate cancer
     Route: 048
  2. ELIQUIS [Concomitant]
     Active Substance: APIXABAN
     Indication: Product used for unknown indication

REACTIONS (8)
  - Angina pectoris [Unknown]
  - Muscle twitching [Unknown]
  - Restless legs syndrome [Unknown]
  - Muscular weakness [Unknown]
  - Pain [Unknown]
  - Dry skin [Unknown]
  - Onychoclasis [Unknown]
  - Hypertension [Unknown]
